APPROVED DRUG PRODUCT: IOPAMIDOL-300
Active Ingredient: IOPAMIDOL
Strength: 61%
Dosage Form/Route: INJECTABLE;INJECTION
Application: A074898 | Product #003
Applicant: HOSPIRA WORLDWIDE, INC
Approved: Dec 30, 1997 | RLD: No | RS: No | Type: DISCN